FAERS Safety Report 16191816 (Version 1)
Quarter: 2019Q2

REPORT INFORMATION
  Report Type: Spontaneous
  Country: GB (occurrence: GB)
  Receive Date: 20190412
  Receipt Date: 20190412
  Transmission Date: 20190711
  Serious: Yes (Hospitalization, Congenital Anomaly, Other)
  Sender: FDA-Public Use
  Company Number: GB-SA-2019SA096091

PATIENT

DRUGS (1)
  1. TOUJEO [Suspect]
     Active Substance: INSULIN GLARGINE
     Dosage: 50 UNK, UNK
     Route: 064

REACTIONS (3)
  - Pneumothorax [Unknown]
  - Congenital pneumonia [Unknown]
  - Foetal exposure during pregnancy [Unknown]
